FAERS Safety Report 9267060 (Version 1)
Quarter: 2013Q2

REPORT INFORMATION
  Report Type: Spontaneous
  Country: CA (occurrence: US)
  Receive Date: 20130502
  Receipt Date: 20130502
  Transmission Date: 20140414
  Serious: No
  Sender: FDA-Public Use
  Company Number: CA-PFIZER INC-2013132756

PATIENT
  Sex: Male

DRUGS (2)
  1. VIAGRA [Suspect]
     Dosage: 100 MG, UNK
  2. BISOPROLOL FUMARATE [Suspect]
     Dosage: UNK

REACTIONS (2)
  - Dizziness [Unknown]
  - Hypotension [Unknown]
